FAERS Safety Report 8761121 (Version 1)
Quarter: 2012Q4

REPORT INFORMATION
  Report Type: 
  Country: FR (occurrence: FR)
  Receive Date: 20120830
  Receipt Date: 20120830
  Transmission Date: 20130627
  Serious: Yes (Other)
  Sender: FDA-Public Use
  Company Number: FR-ASTRAZENECA-2012SE60934

PATIENT
  Age: 78 Year
  Sex: Male

DRUGS (3)
  1. MOPRAL [Suspect]
     Indication: SCIATICA
     Route: 048
     Dates: start: 20120627, end: 20120701
  2. BIPROFENID E.R [Suspect]
     Indication: SCIATICA
     Route: 048
     Dates: start: 20120627, end: 20120701
  3. ACUPAN [Suspect]
     Indication: SCIATICA
     Route: 048
     Dates: start: 20120627, end: 20120701

REACTIONS (3)
  - Pollakiuria [Recovered/Resolved]
  - Dysuria [Recovered/Resolved]
  - Dysuria [Recovered/Resolved]
